FAERS Safety Report 25645192 (Version 2)
Quarter: 2025Q3

REPORT INFORMATION
  Report Type: Spontaneous
  Country: EU (occurrence: EU)
  Receive Date: 20250805
  Receipt Date: 20250821
  Transmission Date: 20251021
  Serious: Yes (Other)
  Sender: SANDOZ
  Company Number: EU-002147023-NVSC2025DE121762

PATIENT
  Age: 50 Year
  Sex: Female
  Weight: 98 kg

DRUGS (4)
  1. ANASTROZOLE [Suspect]
     Active Substance: ANASTROZOLE
     Indication: Hormone receptor positive HER2 negative breast cancer
     Dosage: 1 MG, QD (TOTAL DAILY DOSE)
     Route: 048
     Dates: start: 20250604
  2. RIBOCICLIB [Suspect]
     Active Substance: RIBOCICLIB
     Indication: Hormone receptor positive HER2 negative breast cancer
     Route: 048
     Dates: start: 20250604, end: 20250729
  3. RIBOCICLIB [Suspect]
     Active Substance: RIBOCICLIB
     Route: 048
     Dates: start: 20250813
  4. GONADORELIN DIACETATE TETRAHYDRATE [Concomitant]
     Active Substance: GONADORELIN DIACETATE TETRAHYDRATE
     Indication: Hormone receptor positive HER2 negative breast cancer
     Dosage: 3.6 MG, QMO
     Route: 065
     Dates: start: 20250617

REACTIONS (1)
  - Electrocardiogram QT prolonged [Recovered/Resolved]

NARRATIVE: CASE EVENT DATE: 20250730
